FAERS Safety Report 20372142 (Version 1)
Quarter: 2022Q1

REPORT INFORMATION
  Report Type: Spontaneous
  Country: GR (occurrence: GR)
  Receive Date: 20220124
  Receipt Date: 20220124
  Transmission Date: 20220423
  Serious: Yes (Death, Other)
  Sender: FDA-Public Use
  Company Number: GR-TITAN PHARMACEUTICALS-2022TAN00002

PATIENT
  Age: 64 Year
  Sex: Female

DRUGS (2)
  1. BUPRENORPHINE [Suspect]
     Active Substance: BUPRENORPHINE
     Indication: Drug withdrawal maintenance therapy
     Dosage: UNK
     Route: 065
  2. LEVOTHYROXINE [Concomitant]
     Active Substance: LEVOTHYROXINE
     Indication: Hypothyroidism
     Dosage: 125 UNK, 1X/DAY
     Route: 065

REACTIONS (2)
  - Stress cardiomyopathy [Fatal]
  - Drug withdrawal syndrome [Not Recovered/Not Resolved]
